FAERS Safety Report 9699283 (Version 1)
Quarter: 2013Q4

REPORT INFORMATION
  Report Type: Spontaneous
  Country: US (occurrence: US)
  Receive Date: 20131120
  Receipt Date: 20131120
  Transmission Date: 20140711
  Serious: No
  Sender: FDA-Public Use
  Company Number: US-GILEAD-2008-0015454

PATIENT
  Age: 45 Year
  Sex: Female
  Weight: 63.5 kg

DRUGS (1)
  1. LETAIRIS [Suspect]
     Indication: PULMONARY ARTERIAL HYPERTENSION
     Route: 048
     Dates: start: 20071009, end: 20080222

REACTIONS (1)
  - Gout [Not Recovered/Not Resolved]
